FAERS Safety Report 7900534-9 (Version None)
Quarter: 2011Q4

REPORT INFORMATION
  Report Type: 
  Country: None (occurrence: None)
  Receive Date: 20111108
  Receipt Date: 20111102
  Transmission Date: 20120403
  Serious: Yes (Other)
  Sender: FDA-Public Use
  Company Number: US-AMGEN-USASP2011056099

PATIENT
  Age: 47 Year
  Sex: Female
  Weight: 66.2 kg

DRUGS (4)
  1. TAXOTERE [Concomitant]
     Indication: BREAST CANCER
     Dosage: UNK UNK, Q3WK
  2. CISPLATIN [Concomitant]
     Indication: BREAST CANCER
     Dosage: UNK UNK, Q3WK
     Route: 042
  3. HERCEPTIN [Concomitant]
     Indication: BREAST CANCER
     Dosage: UNK UNK, Q3WK
     Route: 042
  4. NEULASTA [Suspect]
     Indication: CHEMOTHERAPY
     Dosage: 6 MG, Q3WK
     Route: 058
     Dates: start: 20110821, end: 20110821

REACTIONS (4)
  - HYPERSENSITIVITY [None]
  - RASH [None]
  - DYSPNOEA [None]
  - CHEST PAIN [None]
